FAERS Safety Report 6414675-9 (Version None)
Quarter: 2009Q4

REPORT INFORMATION
  Report Type: 
  Country: None (occurrence: None)
  Receive Date: 20091021
  Receipt Date: 20091014
  Transmission Date: 20100525
  Serious: Yes (Other)
  Sender: FDA-Public Use
  Company Number: 1-20372030

PATIENT
  Age: 76 Year
  Sex: Male
  Weight: 58.9676 kg

DRUGS (2)
  1. GLYBURIDE [Suspect]
     Indication: TYPE 2 DIABETES MELLITUS
     Dosage: 5 MG DAILY, ORAL
     Route: 048
     Dates: start: 20050101, end: 20091007
  2. METFORMIN (ZYDUS PHARMACEUTICALS) [Suspect]
     Indication: TYPE 2 DIABETES MELLITUS
     Dosage: ORAL
     Route: 048
     Dates: end: 20091007

REACTIONS (6)
  - DEHYDRATION [None]
  - DIABETIC COMPLICATION [None]
  - DRUG INEFFECTIVE [None]
  - METASTASES TO SPINE [None]
  - PROSTATE CANCER [None]
  - RENAL FAILURE [None]
